FAERS Safety Report 24593661 (Version 1)
Quarter: 2024Q4

REPORT INFORMATION
  Report Type: Spontaneous
  Country: TW (occurrence: TW)
  Receive Date: 20241108
  Receipt Date: 20241108
  Transmission Date: 20250115
  Serious: Yes (Death, Other)
  Sender: BRISTOL-MYERS SQUIBB COMPANY
  Company Number: TW-BRISTOL-MYERS SQUIBB COMPANY-2024-174498

PATIENT

DRUGS (1)
  1. REBLOZYL [Suspect]
     Active Substance: LUSPATERCEPT-AAMT
     Indication: Myelodysplastic syndrome
     Dosage: DOSE: 25 MG 2 VIALS; THE SECOND DOSE OF 2 VIALS SHOWED NO EFFECT, SO THE THIRD DOSE WAS ADJUSTED TO
     Dates: start: 20240822

REACTIONS (1)
  - Death [Fatal]
